FAERS Safety Report 5419377-3 (Version None)
Quarter: 2007Q3

REPORT INFORMATION
  Report Type: 
  Country: None (occurrence: None)
  Receive Date: 20070816
  Receipt Date: 20070816
  Transmission Date: 20080115
  Serious: Yes (Death)
  Sender: FDA-Public Use
  Company Number: None

PATIENT
  Age: 49 Year
  Sex: Female
  Weight: 74.2 kg

DRUGS (2)
  1. WARFARIN SODIUM [Suspect]
     Indication: PULMONARY EMBOLISM
     Dosage: 5 MG DAILY PO
     Route: 048
  2. FACTOR IX CONCENTRATE [Suspect]
     Indication: COAGULOPATHY
     Dosage: 3090 IU THEN 2060 IU ONCE IV
     Route: 042

REACTIONS (4)
  - ELECTROMECHANICAL DISSOCIATION [None]
  - INTERNATIONAL NORMALISED RATIO INCREASED [None]
  - RESPIRATORY FAILURE [None]
  - SUBDURAL HAEMATOMA [None]
